FAERS Safety Report 13485963 (Version 2)
Quarter: 2017Q2

REPORT INFORMATION
  Report Type: Spontaneous
  Country: US (occurrence: US)
  Receive Date: 20170426
  Receipt Date: 20170623
  Transmission Date: 20170830
  Serious: No
  Sender: FDA-Public Use
  Company Number: US-GLAXOSMITHKLINE-US2017GSK059527

PATIENT
  Sex: Female
  Weight: 57.6 kg

DRUGS (4)
  1. BUPROPION SR PROLONGED-RELEASE TABLET [Suspect]
     Active Substance: BUPROPION
     Indication: DEPRESSION
     Dosage: 100 MG, UNK
     Route: 048
  2. BUPROPION SR PROLONGED-RELEASE TABLET [Suspect]
     Active Substance: BUPROPION
     Indication: ANXIETY
  3. FLUOXETINE [Suspect]
     Active Substance: FLUOXETINE HYDROCHLORIDE
     Indication: DEPRESSION
     Route: 048
  4. PREMARIN [Suspect]
     Active Substance: ESTROGENS, CONJUGATED

REACTIONS (1)
  - Cardiac disorder [Unknown]
